FAERS Safety Report 18540294 (Version 1)
Quarter: 2020Q4

REPORT INFORMATION
  Report Type: Spontaneous
  Country: EG (occurrence: EG)
  Receive Date: 20201124
  Receipt Date: 20201124
  Transmission Date: 20210114
  Serious: Yes (Hospitalization)
  Sender: FDA-Public Use
  Company Number: NVSC2020EG312429

PATIENT
  Age: 40 Year
  Sex: Female

DRUGS (2)
  1. CARBAMAZEPINE. [Suspect]
     Active Substance: CARBAMAZEPINE
     Indication: HYPOAESTHESIA
     Dosage: UNK
     Route: 065
  2. DICLOFENAC [Concomitant]
     Active Substance: DICLOFENAC
     Indication: HYPOAESTHESIA
     Dosage: UNK
     Route: 065

REACTIONS (2)
  - Product use in unapproved indication [Unknown]
  - Toxic epidermal necrolysis [Recovering/Resolving]
